FAERS Safety Report 4808076-4 (Version None)
Quarter: 2005Q4

REPORT INFORMATION
  Report Type: 
  Country: None (occurrence: None)
  Receive Date: 20051020
  Receipt Date: 20051012
  Transmission Date: 20060501
  Serious: Yes (Other)
  Sender: FDA-Public Use
  Company Number: 2005141857

PATIENT

DRUGS (1)
  1. FELDENE [Suspect]
     Indication: ILL-DEFINED DISORDER

REACTIONS (1)
  - OSTEONECROSIS [None]
